FAERS Safety Report 5335291-6 (Version None)
Quarter: 2007Q2

REPORT INFORMATION
  Report Type: 
  Country: None (occurrence: None)
  Receive Date: 20070525
  Receipt Date: 20070516
  Transmission Date: 20071010
  Serious: Yes (Other)
  Sender: FDA-Public Use
  Company Number: BR-PFIZER INC-2007030145

PATIENT
  Sex: Female
  Weight: 75 kg

DRUGS (5)
  1. LATANOPROST [Suspect]
     Indication: INTRAOCULAR PRESSURE INCREASED
     Route: 047
  2. TERBINAFINE HCL [Interacting]
     Indication: FUNGAL INFECTION
     Route: 065
     Dates: start: 20070307, end: 20070320
  3. SYNTHROID [Concomitant]
     Indication: HYPOTHYROIDISM
  4. ENALAPRIL MALEATE [Concomitant]
     Indication: HYPERTENSION
  5. SIFROL [Concomitant]
     Dates: start: 20070113

REACTIONS (5)
  - ABNORMAL SENSATION IN EYE [None]
  - DRUG INTERACTION [None]
  - EYE DISORDER [None]
  - EYE IRRITATION [None]
  - OCULAR HYPERAEMIA [None]
